FAERS Safety Report 24200793 (Version 1)
Quarter: 2024Q3

REPORT INFORMATION
  Report Type: Spontaneous
  Country: US (occurrence: None)
  Receive Date: 20240810
  Receipt Date: 20240810
  Transmission Date: 20241017
  Serious: Yes (Hospitalization, Disabling, Other)
  Sender: Public
  Company Number: None

PATIENT
  Age: 67 Year
  Sex: Female
  Weight: 76.5 kg

DRUGS (10)
  1. UNASYN [Suspect]
     Active Substance: AMPICILLIN SODIUM\SULBACTAM SODIUM
     Indication: Parotitis
     Dosage: OTHER QUANTITY : 3 GRAMS?OTHER FREQUENCY : ONCE?
     Route: 042
     Dates: start: 20240316, end: 20240316
  2. AMOXICILLIN\CLAVULANIC ACID [Suspect]
     Active Substance: AMOXICILLIN\CLAVULANIC ACID
     Indication: Parotitis
     Dosage: OTHER QUANTITY : 20 CAPSULE(S)?FREQUENCY : TWICE A DAY?
     Route: 048
     Dates: start: 20240317, end: 20240327
  3. COREG [Concomitant]
     Active Substance: CARVEDILOL
  4. LISINOPRIL [Concomitant]
     Active Substance: LISINOPRIL
  5. TOPAMAX [Concomitant]
     Active Substance: TOPIRAMATE
  6. ASPIRIN [Concomitant]
     Active Substance: ASPIRIN
  7. METFORMIN [Concomitant]
  8. VITAMINS [Concomitant]
     Active Substance: VITAMINS
  9. LEXAPRO [Concomitant]
     Active Substance: ESCITALOPRAM OXALATE
  10. tylenol, m [Concomitant]

REACTIONS (10)
  - Fatigue [None]
  - Myalgia [None]
  - Arthralgia [None]
  - Decreased appetite [None]
  - Cold sweat [None]
  - Hyperhidrosis [None]
  - Pain [None]
  - Nausea [None]
  - Drug-induced liver injury [None]
  - Job dissatisfaction [None]

NARRATIVE: CASE EVENT DATE: 20240703
